FAERS Safety Report 8349750 (Version 4)
Quarter: 2013Q4

REPORT INFORMATION
  Report Type: Spontaneous
  Country: FR (occurrence: FR)
  Receive Date: 20120123
  Receipt Date: 20131029
  Transmission Date: 20140711
  Serious: Yes (Death, Hospitalization)
  Sender: FDA-Public Use
  Company Number: FR-ACTELION-A-CH2012-59467

PATIENT
  Age: 48 Year
  Sex: Male
  Weight: 66 kg

DRUGS (8)
  1. TRACLEER [Suspect]
     Indication: SCLERODERMA RENAL CRISIS
     Dosage: 125 MG, BID
     Route: 048
     Dates: start: 20110511
  2. TRACLEER [Suspect]
     Dosage: 62.5 MG, BID
     Route: 048
     Dates: start: 20110413, end: 20110510
  3. LEVOTHYROX [Concomitant]
  4. CALCIPARINE [Concomitant]
  5. NEXIUM [Concomitant]
  6. EPREX [Concomitant]
  7. DEROXAT [Concomitant]
  8. CORTANCYL [Concomitant]

REACTIONS (5)
  - Renal failure [Fatal]
  - Refusal of treatment by patient [Fatal]
  - Terminal state [Fatal]
  - Cardiac arrest [Fatal]
  - Atrioventricular block complete [Unknown]
